FAERS Safety Report 5136832-4 (Version None)
Quarter: 2006Q4

REPORT INFORMATION
  Report Type: 
  Country: None (occurrence: None)
  Receive Date: 20061023
  Receipt Date: 20061006
  Transmission Date: 20070319
  Serious: Yes (Disabling)
  Sender: FDA-Public Use
  Company Number: VNL_0189_2006

PATIENT
  Age: 58 Year
  Sex: Male

DRUGS (5)
  1. APO-GO [Suspect]
     Indication: PARKINSON'S DISEASE
     Dosage: 75 MG INFUSION SC
     Route: 058
     Dates: start: 20051121
  2. MADOPAR CR [Concomitant]
  3. STALEVO 100 [Concomitant]
  4. CABERGOLINE [Concomitant]
  5. AMITRIPTYLINE HCL [Concomitant]

REACTIONS (5)
  - ATTENTION-SEEKING BEHAVIOUR [None]
  - DRUG DEPENDENCE [None]
  - GAMBLING [None]
  - LIBIDO INCREASED [None]
  - OBSESSIVE-COMPULSIVE DISORDER [None]
